FAERS Safety Report 5311619-8 (Version None)
Quarter: 2007Q1

REPORT INFORMATION
  Report Type: 
  Country: None (occurrence: None)
  Receive Date: 20070201
  Receipt Date: 20061129
  Transmission Date: 20070707
  Serious: No
  Sender: FDA-Public Use
  Company Number: 258992

PATIENT
  Age: 44 Year
  Sex: Female
  Weight: 63 kg

DRUGS (2)
  1. LEVEMIR [Suspect]
     Indication: INSULIN-REQUIRING TYPE II DIABETES MELLITUS
     Dosage: 28 IU, QD, SUBCUTANEOUS
     Route: 058
     Dates: start: 20060501
  2. LANTUS [Concomitant]

REACTIONS (3)
  - HYPOAESTHESIA [None]
  - MASS [None]
  - VAGINAL HAEMORRHAGE [None]
